FAERS Safety Report 22082055 (Version 2)
Quarter: 2023Q2

REPORT INFORMATION
  Report Type: Report from Study
  Country: US (occurrence: None)
  Receive Date: 20230310
  Receipt Date: 20230414
  Transmission Date: 20230722
  Serious: Yes (Death)
  Sender: FDA-Public Use
  Company Number: US-ROCHE-3304997

PATIENT

DRUGS (1)
  1. VENETOCLAX [Suspect]
     Active Substance: VENETOCLAX
     Indication: Acute myeloid leukaemia
     Dosage: PATIENT COMPLETED TREATMENT/LAST DOSE ON 30/JUL/2021. ON 27/AUG/2021, COMPLETED CYCLE 3, PO QD ON DA
     Route: 048
     Dates: start: 20210415

REACTIONS (1)
  - Death [Fatal]

NARRATIVE: CASE EVENT DATE: 20211028
